FAERS Safety Report 17423555 (Version 2)
Quarter: 2020Q1

REPORT INFORMATION
  Report Type: Spontaneous
  Country: US (occurrence: US)
  Receive Date: 20200217
  Receipt Date: 20200221
  Transmission Date: 20200409
  Serious: No
  Sender: FDA-Public Use
  Company Number: US-BIOGEN-2020BI00839657

PATIENT
  Sex: Female

DRUGS (2)
  1. TECFIDERA [Suspect]
     Active Substance: DIMETHYL FUMARATE
     Route: 065
  2. TECFIDERA [Suspect]
     Active Substance: DIMETHYL FUMARATE
     Indication: MULTIPLE SCLEROSIS
     Route: 048
     Dates: start: 20130502

REACTIONS (6)
  - Asthenia [Unknown]
  - Pruritus [Unknown]
  - Blood test abnormal [Unknown]
  - Fatigue [Unknown]
  - Lymphocyte count decreased [Not Recovered/Not Resolved]
  - Hot flush [Not Recovered/Not Resolved]
